FAERS Safety Report 7571896-X (Version None)
Quarter: 2011Q2

REPORT INFORMATION
  Report Type: 
  Country: None (occurrence: None)
  Receive Date: 20110624
  Receipt Date: 20100812
  Transmission Date: 20111010
  Serious: No
  Sender: FDA-Public Use
  Company Number: A0875570A

PATIENT
  Age: 21 Year
  Sex: Male
  Weight: 61.4 kg

DRUGS (1)
  1. VERAMYST [Suspect]
     Dosage: 2SPR TWICE PER DAY
     Route: 045
     Dates: start: 20100801

REACTIONS (3)
  - INSOMNIA [None]
  - DEPRESSION [None]
  - AGITATION [None]
